FAERS Safety Report 4373143-9 (Version None)
Quarter: 2004Q2

REPORT INFORMATION
  Report Type: 
  Country: None (occurrence: None)
  Receive Date: 20040603
  Receipt Date: 20040517
  Transmission Date: 20050107
  Serious: Yes (Hospitalization, Other)
  Sender: FDA-Public Use
  Company Number: USA031049021

PATIENT
  Age: 17 Year
  Sex: Male
  Weight: 79 kg

DRUGS (4)
  1. STRATTERA [Suspect]
     Indication: ATTENTION DEFICIT/HYPERACTIVITY DISORDER
     Dosage: 60 MG/2 DAY
     Dates: start: 20030312, end: 20030626
  2. EFFEXOR [Concomitant]
  3. WELLBUTRIN SR [Concomitant]
  4. REMERON [Concomitant]

REACTIONS (2)
  - GRAND MAL CONVULSION [None]
  - LOSS OF CONSCIOUSNESS [None]
